FAERS Safety Report 5714287-6 (Version None)
Quarter: 2008Q2

REPORT INFORMATION
  Report Type: 
  Country: None (occurrence: None)
  Receive Date: 20080423
  Receipt Date: 20080423
  Transmission Date: 20081010
  Serious: Yes (Death)
  Sender: FDA-Public Use
  Company Number: None

PATIENT
  Age: 86 Year
  Sex: Male
  Weight: 99.7913 kg

DRUGS (3)
  1. HEPARIN [Suspect]
     Indication: RENAL FAILURE ACUTE
     Dates: start: 20071010, end: 20080222
  2. IV ANTIBX [Concomitant]
  3. GENTAMICIN [Concomitant]

REACTIONS (5)
  - CEREBROVASCULAR ACCIDENT [None]
  - DISSEMINATED INTRAVASCULAR COAGULATION [None]
  - DRUG ERUPTION [None]
  - HYPOTENSION [None]
  - VASCULITIS [None]
